FAERS Safety Report 7577516-2 (Version None)
Quarter: 2011Q2

REPORT INFORMATION
  Report Type: 
  Country: None (occurrence: None)
  Receive Date: 20110621
  Receipt Date: 20110602
  Transmission Date: 20111010
  Serious: Yes (Other)
  Sender: FDA-Public Use
  Company Number: CIP11001482

PATIENT
  Sex: Female

DRUGS (2)
  1. EXELON [Suspect]
     Dosage: 18 MG PATCH PER  10 SQUARE CM, TRANSDERMAL
     Route: 062
  2. DARIFENACIN HYDROBROMIDE (ENABLEX) [Suspect]
     Dosage: 15 MG , ORAL
     Route: 048

REACTIONS (3)
  - DYSGRAPHIA [None]
  - CONDITION AGGRAVATED [None]
  - DEMENTIA ALZHEIMER'S TYPE [None]
